FAERS Safety Report 9608184 (Version 2)
Quarter: 2013Q4

REPORT INFORMATION
  Report Type: Spontaneous
  Country: US (occurrence: US)
  Receive Date: 20131009
  Receipt Date: 20131025
  Transmission Date: 20140711
  Serious: No
  Sender: FDA-Public Use
  Company Number: US-PFIZER INC-2013286629

PATIENT
  Age: 60 Year
  Sex: Female
  Weight: 73 kg

DRUGS (1)
  1. CHANTIX [Suspect]
     Indication: SMOKING CESSATION THERAPY
     Dosage: 1 MG, 2X/DAY
     Route: 048
     Dates: start: 201304, end: 2013

REACTIONS (2)
  - Malaise [Recovered/Resolved]
  - Intentional drug misuse [Unknown]
